FAERS Safety Report 7399649-6 (Version None)
Quarter: 2011Q2

REPORT INFORMATION
  Report Type: 
  Country: None (occurrence: None)
  Receive Date: 20110407
  Receipt Date: 20100517
  Transmission Date: 20111010
  Serious: No
  Sender: FDA-Public Use
  Company Number: US-KINGPHARMUSA00001-K201000623

PATIENT
  Sex: Male
  Weight: 86.168 kg

DRUGS (3)
  1. METHADONE [Concomitant]
     Dosage: UNK
  2. SKELAXIN [Suspect]
     Indication: BACK PAIN
     Dosage: 800 MG, TID
     Route: 048
     Dates: start: 20100501, end: 20100515
  3. HYDROCODONE [Concomitant]
     Indication: PAIN
     Dosage: UNK

REACTIONS (1)
  - MUSCULOSKELETAL CHEST PAIN [None]
